FAERS Safety Report 12652815 (Version 1)
Quarter: 2016Q3

REPORT INFORMATION
  Report Type: Spontaneous
  Country: ES (occurrence: ES)
  Receive Date: 20160815
  Receipt Date: 20160815
  Transmission Date: 20161109
  Serious: Yes (Hospitalization, Other)
  Sender: FDA-Public Use
  Company Number: ES-MYLANLABS-2016M1033363

PATIENT

DRUGS (4)
  1. BISOPROLOL [Concomitant]
     Active Substance: BISOPROLOL
     Dosage: 2.5MG/12H
     Route: 065
  2. HYDROXYZINE [Interacting]
     Active Substance: HYDROXYZINE\HYDROXYZINE HYDROCHLORIDE
     Indication: RASH
     Dosage: 25 MG/24H
     Route: 048
  3. LORATADINE. [Suspect]
     Active Substance: LORATADINE
     Indication: RASH
     Dosage: 10MG/24H
     Route: 048
  4. FLECAINIDE [Interacting]
     Active Substance: FLECAINIDE
     Indication: PRODUCT USED FOR UNKNOWN INDICATION
     Dosage: 50MG/12H
     Route: 065

REACTIONS (3)
  - Drug interaction [Recovered/Resolved]
  - Cardiac arrest [Recovered/Resolved]
  - Torsade de pointes [Recovered/Resolved]
